FAERS Safety Report 14587834 (Version 1)
Quarter: 2018Q1

REPORT INFORMATION
  Report Type: Spontaneous
  Country: US (occurrence: US)
  Receive Date: 20180301
  Receipt Date: 20180301
  Transmission Date: 20180509
  Serious: No
  Sender: FDA-Public Use
  Company Number: US-BIOVERATIV-2018BV000090

PATIENT
  Sex: Female
  Weight: 103.41 kg

DRUGS (1)
  1. ALPROLIX [Suspect]
     Active Substance: EFTRENONACOG ALFA
     Indication: FACTOR IX DEFICIENCY
     Dosage: TRIAL DOSE IN JANUARY
     Route: 042
     Dates: start: 201801

REACTIONS (1)
  - Therapeutic procedure [Unknown]
